FAERS Safety Report 9591801 (Version 2)
Quarter: 2013Q4

REPORT INFORMATION
  Report Type: Spontaneous
  Country: US (occurrence: US)
  Receive Date: 20131004
  Receipt Date: 20131004
  Transmission Date: 20140711
  Serious: No
  Sender: FDA-Public Use
  Company Number: US-AMGEN-USASP2012063313

PATIENT
  Age: 35 Year
  Sex: Female

DRUGS (2)
  1. ENBREL [Suspect]
     Indication: PSORIATIC ARTHROPATHY
     Dosage: 50 MG, QWK
     Dates: start: 20120725, end: 201210
  2. METHOTREXATE [Concomitant]
     Dosage: UNK
     Dates: start: 201205

REACTIONS (7)
  - Impaired healing [Not Recovered/Not Resolved]
  - Gingival swelling [Not Recovered/Not Resolved]
  - Rash [Recovered/Resolved]
  - Bronchitis [Recovered/Resolved]
  - Tooth abscess [Recovered/Resolved]
  - Injection site erythema [Recovered/Resolved]
  - Injection site swelling [Recovered/Resolved]
